FAERS Safety Report 7219266-8 (Version None)
Quarter: 2011Q1

REPORT INFORMATION
  Report Type: 
  Country: None (occurrence: None)
  Receive Date: 20110111
  Receipt Date: 20110103
  Transmission Date: 20110831
  Serious: No
  Sender: FDA-Public Use
  Company Number: US-PFIZER INC-2009180320

PATIENT
  Sex: Female

DRUGS (2)
  1. SOTALOL [Suspect]
     Indication: ARRHYTHMIA
  2. AMIODARONE HCL [Suspect]
     Indication: ARRHYTHMIA

REACTIONS (3)
  - DRUG INEFFECTIVE [None]
  - THYROID DISORDER [None]
  - PULMONARY FUNCTION TEST ABNORMAL [None]
